FAERS Safety Report 4579229-8 (Version None)
Quarter: 2005Q1

REPORT INFORMATION
  Report Type: 
  Country: None (occurrence: None)
  Receive Date: 20050209
  Receipt Date: 20050209
  Transmission Date: 20050727
  Serious: Yes (Hospitalization)
  Sender: FDA-Public Use
  Company Number: None

PATIENT
  Age: 28 Year
  Sex: Female
  Weight: 57 kg

DRUGS (1)
  1. BIAXIN [Suspect]
     Indication: BRONCHITIS
     Dosage: X 1 DOSE PO STRENGTH UNKNOWN
     Route: 048
     Dates: start: 20050207

REACTIONS (1)
  - ANAPHYLACTIC REACTION [None]
